FAERS Safety Report 24864011 (Version 1)
Quarter: 2025Q1

REPORT INFORMATION
  Report Type: Spontaneous
  Country: JP (occurrence: JP)
  Receive Date: 20250120
  Receipt Date: 20250120
  Transmission Date: 20250408
  Serious: Yes (Other)
  Sender: PURDUE
  Company Number: JP-MLMSERVICE-20250107-PI340787-00252-1

PATIENT
  Age: 82 Year
  Sex: Male

DRUGS (3)
  1. OXYCODONE HYDROCHLORIDE [Interacting]
     Active Substance: OXYCODONE HYDROCHLORIDE
     Indication: Product used for unknown indication
     Dosage: 7.5 MILLIGRAM, DAILY
     Route: 065
     Dates: start: 2023, end: 202401
  2. OXYCODONE HYDROCHLORIDE [Interacting]
     Active Substance: OXYCODONE HYDROCHLORIDE
     Dosage: 5 MILLIGRAM, DAILY
     Route: 065
     Dates: start: 202401, end: 202402
  3. IMATINIB [Interacting]
     Active Substance: IMATINIB
     Indication: Gastrointestinal stromal tumour
     Dosage: 400 MILLIGRAM, DAILY
     Route: 065
     Dates: start: 202310

REACTIONS (4)
  - Drug interaction [Recovering/Resolving]
  - Chemotherapeutic drug level increased [Recovering/Resolving]
  - Decreased appetite [Recovered/Resolved]
  - Fatigue [Recovered/Resolved]

NARRATIVE: CASE EVENT DATE: 20230101
